FAERS Safety Report 20603334 (Version 1)
Quarter: 2022Q1

REPORT INFORMATION
  Report Type: Spontaneous
  Country: US (occurrence: None)
  Receive Date: 20220316
  Receipt Date: 20220316
  Transmission Date: 20220423
  Serious: No
  Sender: FDA-Public Use
  Company Number: 2022A092108

PATIENT
  Sex: Female

DRUGS (1)
  1. BYETTA [Suspect]
     Active Substance: EXENATIDE
     Dosage: 10.0MG UNKNOWN
     Route: 058

REACTIONS (4)
  - Diabetes mellitus [Unknown]
  - Back pain [Unknown]
  - Accident [Unknown]
  - Device malfunction [Unknown]
